FAERS Safety Report 24025992 (Version 2)
Quarter: 2024Q2

REPORT INFORMATION
  Report Type: Spontaneous
  Country: US (occurrence: US)
  Receive Date: 20240628
  Receipt Date: 20240628
  Transmission Date: 20240716
  Serious: No
  Sender: FDA-Public Use
  Company Number: US-ROCHE-3509100

PATIENT
  Age: 62 Year
  Sex: Female
  Weight: 111.0 kg

DRUGS (3)
  1. ALECENSA [Suspect]
     Active Substance: ALECTINIB HYDROCHLORIDE
     Indication: Lung neoplasm malignant
     Route: 048
     Dates: start: 202301
  2. APIXABAN [Concomitant]
     Active Substance: APIXABAN
  3. ELIQUIS [Concomitant]
     Active Substance: APIXABAN

REACTIONS (1)
  - Nasal congestion [Unknown]
